FAERS Safety Report 19817187 (Version 2)
Quarter: 2021Q3

REPORT INFORMATION
  Report Type: Report from Study
  Country: CN (occurrence: CN)
  Receive Date: 20210910
  Receipt Date: 20210917
  Transmission Date: 20211014
  Serious: Yes (Hospitalization)
  Sender: FDA-Public Use
  Company Number: CN-MACROGENICS-2021000234

PATIENT
  Age: 53 Year
  Sex: Female
  Weight: 46 kg

DRUGS (5)
  1. MARGETUXIMAB. [Suspect]
     Active Substance: MARGETUXIMAB
     Dosage: 750 MG
     Route: 041
     Dates: start: 20210818, end: 20210818
  2. VITAMIN B NOS [Concomitant]
     Active Substance: VITAMIN B
     Indication: VITAMIN SUPPLEMENTATION
     Dosage: UNK
     Route: 065
     Dates: start: 202101
  3. MARGETUXIMAB. [Suspect]
     Active Substance: MARGETUXIMAB
     Indication: BREAST CANCER METASTATIC
     Dosage: 750 MG
     Route: 041
     Dates: start: 20210204, end: 20210204
  4. VINORELBINE [Concomitant]
     Active Substance: VINORELBINE TARTRATE
     Indication: BREAST CANCER METASTATIC
     Dosage: 40 MG
     Route: 041
     Dates: start: 20210204, end: 20210527
  5. EUTHYROX [Concomitant]
     Active Substance: LEVOTHYROXINE SODIUM
     Indication: HYPOTHYROIDISM
     Dosage: UNK
     Route: 065
     Dates: start: 20201009

REACTIONS (1)
  - Asthma [Not Recovered/Not Resolved]

NARRATIVE: CASE EVENT DATE: 202108
